FAERS Safety Report 7308026-5 (Version None)
Quarter: 2011Q1

REPORT INFORMATION
  Report Type: 
  Country: None (occurrence: None)
  Receive Date: 20110223
  Receipt Date: 20100806
  Transmission Date: 20110831
  Serious: Yes (Hospitalization, Other)
  Sender: FDA-Public Use
  Company Number: US-BAYER-200942708NA

PATIENT
  Sex: Female
  Weight: 100 kg

DRUGS (8)
  1. HYDROCODONE BITARTRATE AND ACETAMINOPHEN [Concomitant]
     Route: 048
  2. YAZ [Suspect]
  3. PROPOXYPHENE NAPSYLATE [Concomitant]
     Route: 048
  4. MULTIVITAMIN PREPARATION + MINERAL SUPPLEMENT [Concomitant]
  5. CALCIUM [Concomitant]
  6. YAZ [Suspect]
     Indication: PREMENSTRUAL SYNDROME
     Dosage: UNK UNK, QD
     Route: 048
     Dates: start: 20080501, end: 20090701
  7. YAZ [Suspect]
     Indication: CONTRACEPTION
  8. VITAMIN D [Concomitant]

REACTIONS (3)
  - ABDOMINAL PAIN [None]
  - CHOLELITHIASIS [None]
  - CHOLECYSTITIS CHRONIC [None]
